FAERS Safety Report 5365109-7 (Version None)
Quarter: 2007Q2

REPORT INFORMATION
  Report Type: 
  Country: None (occurrence: None)
  Receive Date: 20070530
  Receipt Date: 20070212
  Transmission Date: 20071010
  Serious: No
  Sender: FDA-Public Use
  Company Number: 2006PV015672

PATIENT
  Age: 58 Year
  Sex: Female
  Weight: 100.9253 kg

DRUGS (8)
  1. BYETTA [Suspect]
     Indication: DIABETES MELLITUS NON-INSULIN-DEPENDENT
     Dosage: 10 MCG,BID; SC
     Route: 058
     Dates: start: 20060801
  2. BYETTA [Suspect]
     Dosage: 10 MCG,BID;SC
     Route: 058
  3. BYETTA [Suspect]
     Dosage: 10 MCG,BID;SC
     Route: 058
  4. BYETTA [Suspect]
     Dosage: 5 MCG,BID;SC, 5 MCG;BID;SC
     Route: 058
     Dates: start: 20060501, end: 20060801
  5. BYETTA [Suspect]
     Dosage: 5 MCG,BID;SC, 5 MCG;BID;SC
     Route: 058
     Dates: start: 20060609, end: 20060801
  6. METFORMIN HCL [Concomitant]
  7. AVANDIA [Concomitant]
  8. AVADAMET [Concomitant]

REACTIONS (6)
  - BLOOD GLUCOSE INCREASED [None]
  - DECREASED APPETITE [None]
  - DIARRHOEA [None]
  - DRUG EFFECT DECREASED [None]
  - DRUG INEFFECTIVE FOR UNAPPROVED INDICATION [None]
  - WEIGHT DECREASED [None]
